FAERS Safety Report 22222004 (Version 1)
Quarter: 2023Q2

REPORT INFORMATION
  Report Type: Report from Study
  Country: US (occurrence: US)
  Receive Date: 20230418
  Receipt Date: 20230418
  Transmission Date: 20230722
  Serious: Yes (Hospitalization, Other)
  Sender: FDA-Public Use
  Company Number: US-ABBVIE-4732183

PATIENT
  Age: 54 Year
  Sex: Female

DRUGS (1)
  1. SKYRIZI [Suspect]
     Active Substance: RISANKIZUMAB-RZAA
     Indication: Psoriasis
     Dosage: TIME INTERVAL: TOTAL: FORM STRENGTH: 150 MILLIGRAM, FREQUENCY TEXT: WEEK 0. LOADING DOSE
     Route: 058
     Dates: start: 20230316, end: 20230316

REACTIONS (1)
  - Breast reconstruction [Unknown]

NARRATIVE: CASE EVENT DATE: 20230413
